FAERS Safety Report 18640286 (Version 1)
Quarter: 2020Q4

REPORT INFORMATION
  Report Type: Spontaneous
  Country: US (occurrence: US)
  Receive Date: 20201220
  Receipt Date: 20201220
  Transmission Date: 20210114
  Serious: No
  Sender: FDA-Public Use
  Company Number: US-PERRIGO-20US009757

PATIENT
  Age: 46 Year
  Sex: Male
  Weight: 99.77 kg

DRUGS (3)
  1. MUPIROCIN. [Suspect]
     Active Substance: MUPIROCIN
     Indication: NASAL VESTIBULITIS
     Dosage: SMALL APPLICATION EACH NOSTRIL, SINGLE
     Route: 045
     Dates: start: 20200629, end: 20200629
  2. MUPIROCIN. [Suspect]
     Active Substance: MUPIROCIN
     Dosage: SMALL APPLICATION EACH NOSTRIL, SINGLE
     Route: 045
     Dates: start: 20200702, end: 20200702
  3. MUPIROCIN. [Suspect]
     Active Substance: MUPIROCIN
     Dosage: SMALL APPLICATION EACH NOSTRIL, TID
     Route: 045
     Dates: start: 20200630, end: 20200701

REACTIONS (3)
  - Product administered at inappropriate site [Recovered/Resolved]
  - Off label use [Recovered/Resolved]
  - Headache [Unknown]

NARRATIVE: CASE EVENT DATE: 20200629
